FAERS Safety Report 8761112 (Version 3)
Quarter: 2013Q1

REPORT INFORMATION
  Report Type: Report from Study
  Country: US (occurrence: US)
  Receive Date: 20120830
  Receipt Date: 20130322
  Transmission Date: 20140127
  Serious: Yes (Death, Other)
  Sender: FDA-Public Use
  Company Number: US-009507513-1208USA010936

PATIENT
  Sex: 0

DRUGS (5)
  1. HEXADROL TABLETS [Suspect]
     Indication: GLIOBLASTOMA
     Route: 048
  2. TEMODAR [Suspect]
  3. LOMUSTINE [Suspect]
  4. CARMUSTINE [Suspect]
  5. ERLOTINIB HYDROCHLORIDE [Suspect]

REACTIONS (2)
  - Sepsis [Fatal]
  - Bone marrow failure [Unknown]
